FAERS Safety Report 8447750-8 (Version None)
Quarter: 2012Q2

REPORT INFORMATION
  Report Type: 
  Country: None (occurrence: None)
  Receive Date: 20120619
  Receipt Date: 20120615
  Transmission Date: 20120825
  Serious: Yes (Death, Hospitalization)
  Sender: FDA-Public Use
  Company Number: US-B.I. PHARMACEUTICALS,INC./RIDGEFIELD-2012-BP-13163BP

PATIENT
  Age: 96 Year
  Sex: Male

DRUGS (2)
  1. OMEPRAZOLE [Concomitant]
  2. PRADAXA [Suspect]
     Dosage: 300 MG

REACTIONS (1)
  - GASTROINTESTINAL HAEMORRHAGE [None]
